FAERS Safety Report 5277269-7 (Version None)
Quarter: 2007Q1

REPORT INFORMATION
  Report Type: 
  Country: None (occurrence: None)
  Receive Date: 20070327
  Receipt Date: 20070326
  Transmission Date: 20070707
  Serious: Yes (Hospitalization)
  Sender: FDA-Public Use
  Company Number: FR-GLAXOSMITHKLINE-B0458478A

PATIENT
  Age: 87 Year
  Sex: Male
  Weight: 88 kg

DRUGS (9)
  1. FORTUM [Suspect]
     Indication: OTITIS EXTERNA
     Route: 042
     Dates: start: 20060824, end: 20061121
  2. CIPROFLOXACIN HCL [Suspect]
     Indication: OTITIS EXTERNA
     Dosage: 200MG PER DAY
     Route: 042
     Dates: start: 20060824, end: 20061121
  3. TARDYFERON [Concomitant]
     Route: 048
     Dates: start: 20060824
  4. NOVOMIX [Concomitant]
     Route: 048
  5. ALLOPURINOL [Concomitant]
     Route: 048
  6. PLAVIX [Concomitant]
     Dosage: 75MG PER DAY
     Route: 048
     Dates: start: 20060606, end: 20061211
  7. DIMETANE [Concomitant]
     Route: 065
  8. ZYVOX [Concomitant]
     Route: 065
     Dates: start: 20061203
  9. TIENAM [Concomitant]
     Route: 065

REACTIONS (11)
  - BLOOD CREATININE INCREASED [None]
  - BLOOD UREA INCREASED [None]
  - BONE MARROW DISORDER [None]
  - MARROW HYPERPLASIA [None]
  - NEPHROCALCINOSIS [None]
  - NEPHROLITHIASIS [None]
  - PYELOCALIECTASIS [None]
  - RENAL CYST [None]
  - RENAL FAILURE ACUTE [None]
  - RENAL IMPAIRMENT [None]
  - THROMBOCYTOPENIA [None]
